FAERS Safety Report 14460672 (Version 1)
Quarter: 2018Q1

REPORT INFORMATION
  Report Type: Spontaneous
  Country: PE (occurrence: PE)
  Receive Date: 20180130
  Receipt Date: 20180130
  Transmission Date: 20180509
  Serious: Yes (Hospitalization)
  Sender: FDA-Public Use
  Company Number: PE-SA-2018SA017771

PATIENT
  Age: 48 Year
  Sex: Male

DRUGS (1)
  1. FABRAZYME [Suspect]
     Active Substance: AGALSIDASE BETA
     Indication: FABRY^S DISEASE
     Route: 041
     Dates: start: 20101201

REACTIONS (2)
  - Renal pain [Not Recovered/Not Resolved]
  - Renal abscess [Not Recovered/Not Resolved]

NARRATIVE: CASE EVENT DATE: 20180117
